FAERS Safety Report 10361965 (Version 1)
Quarter: 2014Q1

REPORT INFORMATION
  Report Type: Spontaneous
  Country: US (occurrence: None)
  Receive Date: 20140306
  Receipt Date: 20140306
  Transmission Date: 20141002
  Serious: Yes (Hospitalization)
  Sender: FDA-Public Use
  Company Number: 163-21880-13073756

PATIENT
  Age: 60 Year
  Sex: Female
  Weight: 81.6 kg

DRUGS (17)
  1. REVLIMID [Suspect]
     Indication: PLASMA CELL MYELOMA
     Route: 048
     Dates: start: 201008
  2. ALPRAZOLAM (ALPRAZOLAM) (TABLETS) [Concomitant]
  3. NIFEDIPINE (NIFEDIPINE) (CAPSULES) [Concomitant]
  4. ASPIRIN (ACETYLSALICYLIC ACID) (TABLETS) [Concomitant]
  5. BUPROPION HCL XL (BUPROPION HYDROCHLORIDE) (TABLETS) [Concomitant]
  6. OXYCODONE-ACETAMINOPHEN (OXYCOCET) [Concomitant]
  7. POTASSIUM CL (POTASSIUM CHLORIDE) (CAPSULES) [Concomitant]
  8. MULTIVITAMINS (MULTIVITAMINS) (TABLETS) [Concomitant]
  9. CLARITIN (LORATADINE) (TABLETS) [Concomitant]
  10. ZYPREXA (OLANZAPINE) (TABLETS) [Concomitant]
  11. GEMFIBROZIL (GEMFIBROZIL) (TABLETS) [Concomitant]
  12. DIPHENOXYLATE-ATROPINE (LOMOTIL) (TABLETS) [Concomitant]
  13. PANTOPRAZOLE SODIUM (PANTOPRAZOLE SODIUM) (TABLETS) [Concomitant]
  14. PENICILLIN VK (PHENOXYMETHYLPENICILLIN POTASSIUM) (TABLETS) [Concomitant]
  15. FLUOXETINE HCL (FLUOXETINE HYDROCHLORIDE) (CAPSULES) [Concomitant]
  16. LORAZEPAM (LORAZEPAM) (TABLETS) [Concomitant]
  17. ACYCLOVIR (ACICLOVIR) (TABLETS) [Concomitant]

REACTIONS (1)
  - Thrombosis [None]
